FAERS Safety Report 12078090 (Version 6)
Quarter: 2017Q1

REPORT INFORMATION
  Report Type: Spontaneous
  Country: CA (occurrence: CA)
  Receive Date: 20160215
  Receipt Date: 20170109
  Transmission Date: 20170428
  Serious: Yes (Other)
  Sender: FDA-Public Use
  Company Number: CA-PFIZER INC-2015263012

PATIENT
  Age: 71 Year
  Sex: Female

DRUGS (6)
  1. SULFASALAZINE. [Suspect]
     Active Substance: SULFASALAZINE
     Indication: RHEUMATOID ARTHRITIS
     Dosage: UNK
     Dates: end: 201601
  2. LYRICA [Suspect]
     Active Substance: PREGABALIN
     Dosage: 50 MG
  3. PARACETAMOL [Suspect]
     Active Substance: ACETAMINOPHEN
     Dosage: UNK
  4. XELJANZ [Suspect]
     Active Substance: TOFACITINIB CITRATE
     Indication: RHEUMATOID ARTHRITIS
     Dosage: 5 MG, 2X/DAY
     Route: 048
     Dates: start: 20150626
  5. PREDNISONE. [Suspect]
     Active Substance: PREDNISONE
     Indication: RHEUMATOID ARTHRITIS
     Dosage: UNK
     Dates: end: 201601
  6. LYRICA [Suspect]
     Active Substance: PREGABALIN
     Dosage: 25 MG

REACTIONS (16)
  - Dry skin [Recovering/Resolving]
  - Peripheral venous disease [Not Recovered/Not Resolved]
  - Joint swelling [Recovering/Resolving]
  - Peripheral swelling [Recovering/Resolving]
  - Osteoarthritis [Not Recovered/Not Resolved]
  - Drug effect incomplete [Unknown]
  - Rhinorrhoea [Recovered/Resolved]
  - Neck pain [Recovering/Resolving]
  - Acne [Recovering/Resolving]
  - Headache [Recovering/Resolving]
  - Sneezing [Recovered/Resolved]
  - Pruritus [Recovering/Resolving]
  - Haematochezia [Recovering/Resolving]
  - Emotional disorder [Recovered/Resolved]
  - Polyp [Recovering/Resolving]
  - Hot flush [Recovering/Resolving]

NARRATIVE: CASE EVENT DATE: 2015
